FAERS Safety Report 6499234-4 (Version None)
Quarter: 2009Q4

REPORT INFORMATION
  Report Type: 
  Country: None (occurrence: None)
  Receive Date: 20091215
  Receipt Date: 20091207
  Transmission Date: 20100525
  Serious: Yes (Hospitalization, Other)
  Sender: FDA-Public Use
  Company Number: US-ELI_LILLY_AND_COMPANY-US200912001733

PATIENT
  Sex: Female
  Weight: 70.3 kg

DRUGS (5)
  1. ALIMTA [Suspect]
     Indication: BREAST CANCER METASTATIC
     Dosage: 1050 MG/M2, UNK
     Route: 042
     Dates: start: 20091008
  2. SENNA [Concomitant]
  3. MIRALAX [Concomitant]
     Dosage: 17 G, AS NEEDED
  4. TYKERB [Concomitant]
  5. NORCO [Concomitant]
     Dosage: UNK, AS NEEDED

REACTIONS (6)
  - ABSCESS BACTERIAL [None]
  - DEHYDRATION [None]
  - HEADACHE [None]
  - NEUTROPENIA [None]
  - STAPHYLOCOCCAL ABSCESS [None]
  - TACHYCARDIA [None]
